FAERS Safety Report 25682184 (Version 1)
Quarter: 2025Q3

REPORT INFORMATION
  Report Type: Report from Study
  Country: CA (occurrence: CA)
  Receive Date: 20250814
  Receipt Date: 20250814
  Transmission Date: 20251020
  Serious: Yes (Other)
  Sender: ELI LILLY AND COMPANY
  Company Number: CA-ELI_LILLY_AND_COMPANY-CA202508005462

PATIENT
  Age: 75 Year
  Sex: Female

DRUGS (3)
  1. TIRZEPATIDE [Suspect]
     Active Substance: TIRZEPATIDE
     Indication: Diabetes mellitus
     Route: 058
     Dates: start: 20250121
  2. TIRZEPATIDE [Suspect]
     Active Substance: TIRZEPATIDE
     Route: 058
  3. TIRZEPATIDE [Suspect]
     Active Substance: TIRZEPATIDE
     Route: 058

REACTIONS (3)
  - Dizziness [Unknown]
  - Fall [Unknown]
  - Injury [Unknown]
